FAERS Safety Report 21848658 (Version 2)
Quarter: 2023Q1

REPORT INFORMATION
  Report Type: Spontaneous
  Country: CA (occurrence: CA)
  Receive Date: 20230111
  Receipt Date: 20230314
  Transmission Date: 20230417
  Serious: Yes (Death, Life-Threatening)
  Sender: FDA-Public Use
  Company Number: CA-002147023-NVSC2023CA005630

PATIENT
  Age: 80 Year
  Sex: Male

DRUGS (9)
  1. ABIRATERONE ACETATE [Suspect]
     Active Substance: ABIRATERONE ACETATE
     Indication: Prostate cancer
     Dosage: 1000 MG, QD (1 EVERY 1 DAYS)
     Route: 048
  2. DEXAMETHASONE [Suspect]
     Active Substance: DEXAMETHASONE
     Indication: Product used for unknown indication
     Dosage: 0.5 MG
     Route: 065
  3. BICALUTAMIDE [Suspect]
     Active Substance: BICALUTAMIDE
     Indication: Product used for unknown indication
     Dosage: 50 MG, QD (1 EVERY 1 DAY)
     Route: 065
  4. LEUPROLIDE ACETATE [Suspect]
     Active Substance: LEUPROLIDE ACETATE
     Indication: Product used for unknown indication
     Dosage: 22.5 MG, Q3MO (1 EVERY 3 MONTHS)
     Route: 065
  5. LEUPROLIDE ACETATE [Suspect]
     Active Substance: LEUPROLIDE ACETATE
     Dosage: 30 MG, Q3MO (1 EVERY 3 MONTHS)
     Route: 065
  6. PREDNISONE [Suspect]
     Active Substance: PREDNISONE
     Indication: Product used for unknown indication
     Dosage: 5 MG, QD (1 EVERY 1 DAYS)
     Route: 065
  7. ELIGARD [Suspect]
     Active Substance: LEUPROLIDE ACETATE
     Indication: Product used for unknown indication
     Dosage: 22.5 MG, Q3MO (POWDER FOR SUSPENSION SUSTAINED RELEASE)
     Route: 065
  8. ELIGARD [Suspect]
     Active Substance: LEUPROLIDE ACETATE
     Dosage: 30 MG, Q3MO (POWDER FOR SUSPENSION SUSTAINED RELEASE)
     Route: 065
  9. ZYTIGA [Suspect]
     Active Substance: ABIRATERONE ACETATE
     Indication: Prostate cancer
     Dosage: 1000 MG, QD
     Route: 048

REACTIONS (2)
  - Respiratory arrest [Fatal]
  - Off label use [Fatal]
